FAERS Safety Report 25979457 (Version 2)
Quarter: 2025Q4

REPORT INFORMATION
  Report Type: Spontaneous
  Country: US (occurrence: US)
  Receive Date: 20251030
  Receipt Date: 20251120
  Transmission Date: 20260117
  Serious: No
  Sender: TRAVERE THERAPEUTICS
  Company Number: US-TRAVERE-2025TVT01741

PATIENT
  Sex: Female

DRUGS (3)
  1. FILSPARI [Suspect]
     Active Substance: SPARSENTAN
     Indication: IgA nephropathy
     Route: 048
  2. FILSPARI [Suspect]
     Active Substance: SPARSENTAN
     Route: 048
     Dates: start: 202506
  3. TARPEYO [Concomitant]
     Active Substance: BUDESONIDE

REACTIONS (4)
  - Nausea [Unknown]
  - Vomiting [Unknown]
  - Epigastric discomfort [Unknown]
  - Product administration error [Unknown]
